FAERS Safety Report 5381008-9 (Version None)
Quarter: 2007Q3

REPORT INFORMATION
  Report Type: 
  Country: None (occurrence: None)
  Receive Date: 20070702
  Receipt Date: 20070402
  Transmission Date: 20080115
  Serious: Yes (Other)
  Sender: FDA-Public Use
  Company Number: PROG00207001140

PATIENT
  Sex: Female

DRUGS (1)
  1. PROMETRIUM [Suspect]
     Indication: LUTEAL PHASE DEFICIENCY
     Dosage: 100 MILLIGRAM(S) BID ORAL DAILY DOSE: 200 MILLIGRAM(S)
     Route: 048

REACTIONS (1)
  - LOSS OF CONSCIOUSNESS [None]
